FAERS Safety Report 15561421 (Version 1)
Quarter: 2018Q4

REPORT INFORMATION
  Report Type: Spontaneous
  Country: US (occurrence: US)
  Receive Date: 20181023
  Receipt Date: 20181023
  Transmission Date: 20190205
  Serious: No
  Sender: FDA-Public Use
  Company Number: None

PATIENT
  Sex: Female

DRUGS (1)
  1. REMICADE [Suspect]
     Active Substance: INFLIXIMAB
     Indication: COLITIS
     Dosage: 600MG EVERY 8 WEEKS IV
     Route: 042
     Dates: start: 20150910

REACTIONS (7)
  - Fatigue [None]
  - Poor quality sleep [None]
  - Lip dry [None]
  - Aphasia [None]
  - Speech disorder [None]
  - Pallor [None]
  - Paraesthesia [None]
